FAERS Safety Report 25331644 (Version 1)
Quarter: 2025Q2

REPORT INFORMATION
  Report Type: Spontaneous
  Country: DE (occurrence: DE)
  Receive Date: 20250519
  Receipt Date: 20250519
  Transmission Date: 20250716
  Serious: Yes (Other)
  Sender: PFIZER
  Company Number: DE-002147023-NVSC2025DE075008

PATIENT
  Sex: Male

DRUGS (2)
  1. LORLATINIB [Suspect]
     Active Substance: LORLATINIB
     Indication: Lung adenocarcinoma
     Route: 065
     Dates: start: 202011
  2. CERITINIB [Suspect]
     Active Substance: CERITINIB
     Indication: Lung adenocarcinoma
     Route: 065
     Dates: start: 201612

REACTIONS (6)
  - Diabetes mellitus [Recovered/Resolved]
  - Metastases to central nervous system [Unknown]
  - Blood cholesterol increased [Recovered/Resolved]
  - Weight increased [Recovering/Resolving]
  - Low density lipoprotein increased [Unknown]
  - Blood triglycerides increased [Unknown]

NARRATIVE: CASE EVENT DATE: 20161201
